FAERS Safety Report 4510694-8 (Version None)
Quarter: 2004Q4

REPORT INFORMATION
  Report Type: 
  Country: None (occurrence: None)
  Receive Date: 20041122
  Receipt Date: 20041108
  Transmission Date: 20050328
  Serious: Yes (Hospitalization, Other)
  Sender: FDA-Public Use
  Company Number: 2004075893

PATIENT
  Sex: Female

DRUGS (4)
  1. ZITHROMAX [Suspect]
     Indication: NASAL CONGESTION
     Dosage: ORAL
     Route: 048
     Dates: start: 20040901, end: 20040901
  2. ZITHROMAX [Suspect]
     Indication: NASOPHARYNGEAL DISORDER
     Dosage: ORAL
     Route: 048
     Dates: start: 20040901, end: 20040901
  3. HEDERA HELIX (HEDERA HELIX) [Concomitant]
  4. DECONGESTANT AND ANTIALLERGICS (DECONGESTANT AND ANTIALLERGICS) [Concomitant]

REACTIONS (1)
  - HYPOTHERMIA [None]
